FAERS Safety Report 8123670-3 (Version None)
Quarter: 2012Q1

REPORT INFORMATION
  Report Type: 
  Country: None (occurrence: None)
  Receive Date: 20120208
  Receipt Date: 20120206
  Transmission Date: 20120608
  Serious: Yes (Death)
  Sender: FDA-Public Use
  Company Number: PHHY2012AU005137

PATIENT
  Sex: Female

DRUGS (6)
  1. ZOLEDRONOC ACID [Suspect]
     Dosage: 5 MG, UNK
     Route: 042
     Dates: start: 20101217
  2. COUMADIN [Concomitant]
     Indication: ATRIAL FIBRILLATION
     Dosage: UNK UKN, UNK
     Route: 048
  3. DIGOXIN [Concomitant]
     Indication: ATRIAL FIBRILLATION
     Dosage: 2 DF, AT NIGHT
  4. FERRO [Concomitant]
     Indication: MINERAL SUPPLEMENTATION
     Dosage: 10 MG, DAILY
  5. ZOLEDRONOC ACID [Suspect]
     Dosage: 5 MG, UNK
     Route: 042
  6. PANAMAX [Concomitant]
     Dosage: TWICE A DAY AS NEEDED
     Route: 048

REACTIONS (2)
  - DEATH [None]
  - BLOOD SODIUM DECREASED [None]
